FAERS Safety Report 9322616 (Version 1)
Quarter: 2013Q2

REPORT INFORMATION
  Report Type: Spontaneous
  Country: US (occurrence: US)
  Receive Date: 20130531
  Receipt Date: 20130531
  Transmission Date: 20140414
  Serious: No
  Sender: FDA-Public Use
  Company Number: US-ASTRAZENECA-2013SE36582

PATIENT
  Age: 70 Year
  Sex: Male
  Weight: 99.8 kg

DRUGS (2)
  1. SYMBICORT [Suspect]
     Indication: EMPHYSEMA
     Dosage: 320 MCGS TWO PUFFS TWICE DAILY
     Route: 055
  2. MANY MEDICATIONS -ALMOST 14 [Concomitant]

REACTIONS (6)
  - Malaise [Unknown]
  - Abdominal discomfort [Unknown]
  - Increased upper airway secretion [Unknown]
  - Arthritis [Unknown]
  - Injury [Unknown]
  - Hypoacusis [Unknown]
